FAERS Safety Report 5730467-8 (Version None)
Quarter: 2008Q2

REPORT INFORMATION
  Report Type: 
  Country: None (occurrence: None)
  Receive Date: 20080507
  Receipt Date: 20080501
  Transmission Date: 20081010
  Serious: Yes (Other)
  Sender: FDA-Public Use
  Company Number: US-SP-2008-00465

PATIENT
  Age: 67 Year
  Sex: Female

DRUGS (1)
  1. THERACYS [Suspect]
     Route: 043
     Dates: start: 20080131

REACTIONS (5)
  - ARTHRALGIA [None]
  - CHILLS [None]
  - DYSURIA [None]
  - HAEMATURIA [None]
  - PYREXIA [None]
